FAERS Safety Report 13964557 (Version 2)
Quarter: 2018Q1

REPORT INFORMATION
  Report Type: Spontaneous
  Country: BR (occurrence: BR)
  Receive Date: 20170913
  Receipt Date: 20180223
  Transmission Date: 20180508
  Serious: Yes (Other)
  Sender: FDA-Public Use
  Company Number: BR-IMPAX LABORATORIES, INC-2017-IPXL-02635

PATIENT
  Age: 22 Year
  Sex: Female

DRUGS (1)
  1. TETRACYCLINE HYDROCHLORIDE. [Suspect]
     Active Substance: TETRACYCLINE HYDROCHLORIDE
     Indication: OTITIS MEDIA
     Dosage: 500 MG, EVERY 6 HOURS
     Route: 048
     Dates: start: 200308, end: 200308

REACTIONS (1)
  - Idiopathic intracranial hypertension [Recovered/Resolved]
